FAERS Safety Report 6321719-1 (Version None)
Quarter: 2009Q3

REPORT INFORMATION
  Report Type: 
  Country: None (occurrence: None)
  Receive Date: 20090821
  Receipt Date: 20090821
  Transmission Date: 20100115
  Serious: Yes (Other)
  Sender: FDA-Public Use
  Company Number: None

PATIENT
  Age: 51 Year
  Sex: Female
  Weight: 77.1115 kg

DRUGS (2)
  1. FLUCONAZOLE [Suspect]
     Indication: URINARY TRACT INFECTION
     Dosage: 150MG 1 TABLET UNTIL GONE BY MOUTH
     Route: 048
     Dates: start: 20090626
  2. LIPITOR [Suspect]
     Indication: HYPERCHOLESTEROLAEMIA
     Dosage: 40MG 1 TABLET EVERY DAY BY MOUTH
     Route: 048
     Dates: start: 20090514

REACTIONS (2)
  - DRUG INTERACTION [None]
  - MYALGIA [None]
